FAERS Safety Report 15550502 (Version 1)
Quarter: 2018Q4

REPORT INFORMATION
  Report Type: Spontaneous
  Country: US (occurrence: US)
  Receive Date: 20181025
  Receipt Date: 20181025
  Transmission Date: 20190205
  Serious: Yes (Hospitalization)
  Sender: FDA-Public Use
  Company Number: US-APOTEX-2018AP022913

PATIENT
  Sex: Female

DRUGS (1)
  1. RISEDRONATE SODIUM TABLETS USP [Suspect]
     Active Substance: RISEDRONATE SODIUM
     Indication: PRODUCT USED FOR UNKNOWN INDICATION
     Dosage: UNK, UNKNOWN
     Route: 065

REACTIONS (7)
  - Pain [Unknown]
  - Flank pain [Unknown]
  - Chest pain [Unknown]
  - Chills [Unknown]
  - Influenza like illness [Unknown]
  - Pleurisy [Unknown]
  - Bacterial test positive [Unknown]
